FAERS Safety Report 14499198 (Version 1)
Quarter: 2018Q1

REPORT INFORMATION
  Report Type: Spontaneous
  Country: US (occurrence: US)
  Receive Date: 20180207
  Receipt Date: 20180207
  Transmission Date: 20180509
  Serious: No
  Sender: FDA-Public Use
  Company Number: US-JAZZ-2017-US-007422

PATIENT
  Age: 78 Year
  Sex: Female

DRUGS (2)
  1. PRIALT [Suspect]
     Active Substance: ZICONOTIDE ACETATE
     Indication: PAIN
     Dosage: .31?G, QH
     Route: 037
  2. PRIALT [Suspect]
     Active Substance: ZICONOTIDE ACETATE
     Dosage: .19?G, QH
     Route: 037

REACTIONS (4)
  - Nausea [Unknown]
  - Hypertension [Unknown]
  - Skin burning sensation [Unknown]
  - Vomiting [Unknown]
